FAERS Safety Report 9286934 (Version 1)
Quarter: 2013Q2

REPORT INFORMATION
  Report Type: Spontaneous
  Country: GB (occurrence: None)
  Receive Date: 20130508
  Receipt Date: 20130508
  Transmission Date: 20140414
  Serious: Yes (Other)
  Sender: FDA-Public Use
  Company Number: AUR-APL-2013-03619

PATIENT
  Age: 80 Year
  Sex: Female
  Weight: 84 kg

DRUGS (1)
  1. ALENDRONIC ACID (ALENDRONIC ACID) [Suspect]
     Indication: PRODUCT USED FOR UNKNOWN INDICATION

REACTIONS (2)
  - Cystitis [None]
  - Pollakiuria [None]
